FAERS Safety Report 6919517-0 (Version None)
Quarter: 2010Q3

REPORT INFORMATION
  Report Type: 
  Country: None (occurrence: None)
  Receive Date: 20100811
  Receipt Date: 20100802
  Transmission Date: 20110219
  Serious: Yes (Other)
  Sender: FDA-Public Use
  Company Number: US-TEVA-243422USA

PATIENT
  Age: 11 Year
  Sex: Male

DRUGS (1)
  1. CIPROFLOXACIN HYDROCHLORIDE TABLETS, 250 MG, 500 MG, 750 MG [Suspect]
     Indication: PHARYNGITIS STREPTOCOCCAL

REACTIONS (1)
  - LINEAR IGA DISEASE [None]
